FAERS Safety Report 7435196-0 (Version None)
Quarter: 2011Q2

REPORT INFORMATION
  Report Type: 
  Country: None (occurrence: None)
  Receive Date: 20110425
  Receipt Date: 20110411
  Transmission Date: 20111010
  Serious: Yes (Death)
  Sender: FDA-Public Use
  Company Number: DE-CELGENEUS-062-21880-11041271

PATIENT
  Age: 73 Year
  Sex: Female

DRUGS (7)
  1. CYANOCOBALAMIN [Concomitant]
     Route: 065
  2. REVLIMID [Suspect]
     Route: 048
  3. AREDIA [Concomitant]
     Route: 065
  4. LACTULOSE [Concomitant]
     Route: 065
  5. METOCLOPRAMIDE [Concomitant]
     Route: 065
  6. COTRIM [Concomitant]
     Route: 065
  7. LEVOFLOXACIN [Concomitant]
     Route: 065

REACTIONS (1)
  - DEATH [None]
